FAERS Safety Report 19007952 (Version 2)
Quarter: 2021Q2

REPORT INFORMATION
  Report Type: Report from Study
  Country: None (occurrence: US)
  Receive Date: 20210315
  Receipt Date: 20210506
  Transmission Date: 20210717
  Serious: Yes (Other)
  Sender: FDA-Public Use
  Company Number: US-ABBVIE-21K-163-3811866-00

PATIENT
  Age: 64 Year
  Sex: Female
  Weight: 71.73 kg

DRUGS (3)
  1. DICLOFENAC [Concomitant]
     Active Substance: DICLOFENAC
     Indication: PSORIATIC ARTHROPATHY
  2. HUMIRA [Suspect]
     Active Substance: ADALIMUMAB
     Indication: PSORIATIC ARTHROPATHY
     Route: 058
     Dates: start: 20181212
  3. HUMIRA [Suspect]
     Active Substance: ADALIMUMAB
     Indication: PSORIATIC ARTHROPATHY
     Route: 058
     Dates: start: 20160424, end: 20181128

REACTIONS (6)
  - Synovial cyst [Unknown]
  - Joint effusion [Unknown]
  - Meniscus injury [Not Recovered/Not Resolved]
  - Joint injury [Unknown]
  - Osteoarthritis [Unknown]
  - Chondromalacia [Unknown]

NARRATIVE: CASE EVENT DATE: 20191010
